FAERS Safety Report 8623075-2 (Version None)
Quarter: 2012Q3

REPORT INFORMATION
  Report Type: 
  Country: None (occurrence: None)
  Receive Date: 20120827
  Receipt Date: 20120820
  Transmission Date: 20120928
  Serious: Yes (Hospitalization)
  Sender: FDA-Public Use
  Company Number: US-JNJFOC-20120810837

PATIENT
  Sex: Male
  Weight: 25.1 kg

DRUGS (13)
  1. FOLIC ACID [Concomitant]
  2. OXYCODONE HCL [Concomitant]
  3. CEFDINIR [Concomitant]
  4. MULTI-VITAMINS [Concomitant]
  5. FERROUS SULFATE TAB [Concomitant]
  6. REMICADE [Suspect]
     Route: 042
     Dates: start: 20120522
  7. HYDROCORTISONE [Concomitant]
  8. ACETAMINOPHEN [Concomitant]
  9. REMICADE [Suspect]
     Indication: CROHN'S DISEASE
     Route: 042
  10. CALCIUM CARBONATE VITAMIN D [Concomitant]
  11. METRONIDAZOLE [Concomitant]
  12. METHOTREXATE [Concomitant]
  13. CHOLECALCIFEROL [Concomitant]

REACTIONS (1)
  - CROHN'S DISEASE [None]
